FAERS Safety Report 18943472 (Version 9)
Quarter: 2022Q2

REPORT INFORMATION
  Report Type: Spontaneous
  Country: US (occurrence: US)
  Receive Date: 20210226
  Receipt Date: 20220524
  Transmission Date: 20220721
  Serious: Yes (Other)
  Sender: FDA-Public Use
  Company Number: US-CELLTRION INC.-2021US001709

PATIENT

DRUGS (13)
  1. INFLECTRA [Suspect]
     Active Substance: INFLIXIMAB-DYYB
     Indication: Uveitis
     Dosage: 700 MG EVERY 28 DAYS (REFILLS: 11)
     Route: 042
     Dates: start: 20210119
  2. INFLECTRA [Suspect]
     Active Substance: INFLIXIMAB-DYYB
     Indication: Cataract
     Dosage: UNK
     Route: 065
     Dates: start: 202103
  3. INFLECTRA [Suspect]
     Active Substance: INFLIXIMAB-DYYB
     Indication: Iridocyclitis
     Dosage: 700 MG
     Route: 065
  4. INFLECTRA [Suspect]
     Active Substance: INFLIXIMAB-DYYB
     Indication: Sudden visual loss
  5. INFLECTRA [Suspect]
     Active Substance: INFLIXIMAB-DYYB
     Indication: Juvenile idiopathic arthritis
  6. INFLECTRA [Suspect]
     Active Substance: INFLIXIMAB-DYYB
     Indication: Polyarthritis
  7. INFLECTRA [Suspect]
     Active Substance: INFLIXIMAB-DYYB
     Indication: Rheumatoid factor negative
  8. INFLECTRA [Suspect]
     Active Substance: INFLIXIMAB-DYYB
     Indication: Product used for unknown indication
  9. RITUXIMAB [Suspect]
     Active Substance: RITUXIMAB
     Indication: Uveitis
  10. METHYLPREDNISOLONE SODIUM SUCCINATE [Concomitant]
     Active Substance: METHYLPREDNISOLONE SODIUM SUCCINATE
     Dosage: 1,000 MG INTRAVENOUSLY EVERY 28 DAYS
     Route: 042
  11. HUMIRA [Concomitant]
     Active Substance: ADALIMUMAB
     Indication: Uveitis
  12. ACTEMRA [Concomitant]
     Active Substance: TOCILIZUMAB
     Indication: Uveitis
  13. METHOTREXATE [Concomitant]
     Active Substance: METHOTREXATE
     Indication: Uveitis

REACTIONS (4)
  - Uveitis [Unknown]
  - Off label use [Unknown]
  - Treatment failure [Unknown]
  - Product temperature excursion issue [Unknown]

NARRATIVE: CASE EVENT DATE: 20210119
